FAERS Safety Report 9026475 (Version 1)
Quarter: 2013Q1

REPORT INFORMATION
  Report Type: Spontaneous
  Country: BR (occurrence: None)
  Receive Date: 20130107
  Receipt Date: 20130107
  Transmission Date: 20140127
  Serious: Yes (Death)
  Sender: FDA-Public Use
  Company Number: COL_12931_2012

PATIENT
  Age: 48 Year
  Sex: Female

DRUGS (1)
  1. CETYLPYRIDINIUM CHLORIDE [Suspect]
     Indication: TOOTH DISORDER
     Route: 048

REACTIONS (4)
  - Throat irritation [None]
  - Pain [None]
  - Pyrexia [None]
  - Infection [None]
